FAERS Safety Report 10545241 (Version 2)
Quarter: 2014Q4

REPORT INFORMATION
  Report Type: Spontaneous
  Country: PE (occurrence: PE)
  Receive Date: 20141027
  Receipt Date: 20141028
  Transmission Date: 20150529
  Serious: Yes (Death, Hospitalization)
  Sender: FDA-Public Use
  Company Number: PE-BAYER-2014-151671

PATIENT
  Sex: Female

DRUGS (1)
  1. STIVARGA [Suspect]
     Active Substance: REGORAFENIB
     Dosage: UNK
     Route: 048
     Dates: start: 20140815, end: 20140915

REACTIONS (6)
  - Neutropenia [Unknown]
  - Pyrexia [Unknown]
  - Viral infection [Unknown]
  - Bronchial hyperreactivity [Unknown]
  - Skin reaction [Unknown]
  - Disease progression [Fatal]

NARRATIVE: CASE EVENT DATE: 2014
